FAERS Safety Report 5938980-5 (Version None)
Quarter: 2008Q4

REPORT INFORMATION
  Report Type: 
  Country: None (occurrence: None)
  Receive Date: 20081103
  Receipt Date: 20081023
  Transmission Date: 20090506
  Serious: Yes (Other)
  Sender: FDA-Public Use
  Company Number: US-JNJFOC-20081006090

PATIENT
  Age: 66 Year
  Sex: Male
  Weight: 90.72 kg

DRUGS (8)
  1. MOTRIN IB [Suspect]
     Route: 048
  2. MOTRIN IB [Suspect]
     Indication: ARTHRALGIA
     Dosage: 200 MG EVERY 8 HOURS TIMES 4 DOSES
     Route: 048
  3. ASPIRIN [Suspect]
     Indication: DRUG USE FOR UNKNOWN INDICATION
  4. CELEBREX [Suspect]
     Indication: ARTHRALGIA
  5. TYLENOL (CAPLET) [Concomitant]
     Indication: ARTHRALGIA
  6. TRICOR [Concomitant]
  7. AVAPRO [Concomitant]
  8. ZETIA [Concomitant]

REACTIONS (1)
  - GASTRIC HAEMORRHAGE [None]
